FAERS Safety Report 17925463 (Version 1)
Quarter: 2020Q2

REPORT INFORMATION
  Report Type: Spontaneous
  Country: US (occurrence: US)
  Receive Date: 20200622
  Receipt Date: 20200622
  Transmission Date: 20200714
  Serious: No
  Sender: FDA-Public Use
  Company Number: US-GILEAD-2020-0473056

PATIENT
  Age: 35 Year
  Sex: Female
  Weight: 87.98 kg

DRUGS (3)
  1. ASHWAGANDHA [WITHANIA SOMNIFERA ROOT] [Concomitant]
  2. DOLUTEGRAVIR [DOLUTEGRAVIR SODIUM] [Concomitant]
     Indication: HIV INFECTION
  3. DESCOVY [Suspect]
     Active Substance: EMTRICITABINE\TENOFOVIR ALAFENAMIDE FUMARATE
     Indication: HIV INFECTION
     Dosage: UNK
     Route: 065
     Dates: start: 2018

REACTIONS (1)
  - Weight increased [Unknown]
